FAERS Safety Report 18889093 (Version 1)
Quarter: 2021Q1

REPORT INFORMATION
  Report Type: Spontaneous
  Country: BR (occurrence: BR)
  Receive Date: 20210212
  Receipt Date: 20210212
  Transmission Date: 20210420
  Serious: Yes (Death, Other)
  Sender: FDA-Public Use
  Company Number: BR-ASTRAZENECA-2021A048912

PATIENT

DRUGS (3)
  1. OSIMERTINIB. [Suspect]
     Active Substance: OSIMERTINIB
     Indication: EGFR GENE MUTATION
     Dosage: UNKNOWN DOSE AND FREQUENCY
     Route: 048
  2. DABRAFENIB [Concomitant]
     Active Substance: DABRAFENIB
     Route: 065
  3. TRAMETINIB [Concomitant]
     Active Substance: TRAMETINIB
     Route: 065

REACTIONS (3)
  - Disease progression [Fatal]
  - BRAF gene mutation [Fatal]
  - Off label use [Fatal]
